FAERS Safety Report 14033206 (Version 1)
Quarter: 2017Q4

REPORT INFORMATION
  Report Type: Spontaneous
  Country: US (occurrence: US)
  Receive Date: 20171002
  Receipt Date: 20171002
  Transmission Date: 20180321
  Serious: Yes (Life-Threatening, Other)
  Sender: FDA-Public Use
  Company Number: None

PATIENT
  Age: 66 Year
  Sex: Female
  Weight: 96.75 kg

DRUGS (13)
  1. JANUVIA [Concomitant]
     Active Substance: SITAGLIPTIN PHOSPHATE
  2. LYRICA [Concomitant]
     Active Substance: PREGABALIN
  3. LICENOPRIL [Concomitant]
  4. ALEVE [Concomitant]
     Active Substance: NAPROXEN SODIUM
  5. WELCHOL [Suspect]
     Active Substance: COLESEVELAM HYDROCHLORIDE
     Indication: THERAPEUTIC RESPONSE UNEXPECTED
     Dosage: ?          QUANTITY:1 POWDER PACKET;?
     Route: 048
     Dates: start: 20170928, end: 20170929
  6. GLIPIZDE [Concomitant]
     Active Substance: GLIPIZIDE
  7. ADVIL [Concomitant]
     Active Substance: IBUPROFEN
  8. WELCHOL [Suspect]
     Active Substance: COLESEVELAM HYDROCHLORIDE
     Indication: BLOOD CHOLESTEROL INCREASED
     Dosage: ?          QUANTITY:1 POWDER PACKET;?
     Route: 048
     Dates: start: 20170928, end: 20170929
  9. VITAMIN D [Concomitant]
     Active Substance: CHOLECALCIFEROL
  10. CINNAMON. [Concomitant]
     Active Substance: CINNAMON
  11. CALCIUM [Concomitant]
     Active Substance: CALCIUM
  12. VITAMIN E [Concomitant]
     Active Substance: .ALPHA.-TOCOPHEROL
  13. EXCEDINE MIGRAINE [Concomitant]

REACTIONS (17)
  - Increased viscosity of upper respiratory secretion [None]
  - Hypoglycaemia [None]
  - Gait disturbance [None]
  - Dysphagia [None]
  - Musculoskeletal stiffness [None]
  - Oral pain [None]
  - Thirst [None]
  - Migraine [None]
  - Anxiety [None]
  - Dyspepsia [None]
  - Tongue discomfort [None]
  - Myalgia [None]
  - Pain [None]
  - Throat irritation [None]
  - Headache [None]
  - Nausea [None]
  - Constipation [None]

NARRATIVE: CASE EVENT DATE: 20170929
